FAERS Safety Report 8468432-2 (Version None)
Quarter: 2012Q2

REPORT INFORMATION
  Report Type: 
  Country: None (occurrence: None)
  Receive Date: 20120620
  Receipt Date: 20120606
  Transmission Date: 20120825
  Serious: Yes (Disabling, Other)
  Sender: FDA-Public Use
  Company Number: 2012P1018062

PATIENT
  Age: 62 Year
  Sex: Female
  Weight: 63.5036 kg

DRUGS (14)
  1. DILAUDID [Concomitant]
  2. EPIPEN [Concomitant]
  3. VORICONAZOLE [Concomitant]
  4. PREDNISONE TAB [Concomitant]
  5. CITRACAL PLUS [Concomitant]
  6. WARFARIN SODIUM [Suspect]
     Indication: THROMBOSIS
  7. LISINOPRIL [Concomitant]
  8. METFORMIN HCL [Concomitant]
  9. OXYCODONE HCL [Concomitant]
  10. CLIMARA [Concomitant]
  11. HIZENTRA [Concomitant]
  12. AMPHOTERICIN B POWDER [Concomitant]
  13. FORTEO [Concomitant]
  14. NEURONTIN [Concomitant]

REACTIONS (8)
  - HYPOTENSION [None]
  - BLINDNESS [None]
  - RENAL FAILURE CHRONIC [None]
  - INFLAMMATORY MARKER INCREASED [None]
  - RED BLOOD CELL SEDIMENTATION RATE INCREASED [None]
  - INTERNATIONAL NORMALISED RATIO DECREASED [None]
  - ANTINUCLEAR ANTIBODY POSITIVE [None]
  - C-REACTIVE PROTEIN INCREASED [None]
